FAERS Safety Report 16028543 (Version 9)
Quarter: 2023Q4

REPORT INFORMATION
  Report Type: Other
  Country: DE (occurrence: None)
  Receive Date: 20190304
  Receipt Date: 20231002
  Transmission Date: 20240109
  Serious: Yes (Hospitalization, Other)
  Sender: FDA-Public Use
  Company Number: DE-ROCHE-2271569

PATIENT
  Age: 45 Year
  Sex: Female

DRUGS (12)
  1. OCREVUS [Suspect]
     Active Substance: OCRELIZUMAB
     Indication: Secondary progressive multiple sclerosis
     Dosage: 600 MG 1 TO 215 DAYS, 182 DAYS
     Route: 042
     Dates: start: 20180730
  2. OCREVUS [Suspect]
     Active Substance: OCRELIZUMAB
     Indication: Relapsing-remitting multiple sclerosis
     Dosage: SUBSEQUENT DOSES OF OCRELIZUMAB: 13/JAN/2021, 16/AUG/2021
     Route: 042
     Dates: start: 20190213, end: 20210816
  3. OCREVUS [Suspect]
     Active Substance: OCRELIZUMAB
     Route: 042
     Dates: start: 20220912
  4. SPIKEVAX (ELASOMERAN) [Suspect]
     Active Substance: ELASOMERAN
     Indication: COVID-19 prophylaxis
     Route: 065
  5. CHOLECALCIFEROL [Concomitant]
     Active Substance: CHOLECALCIFEROL
  6. ESOMEPRAZOLE [Concomitant]
     Active Substance: ESOMEPRAZOLE
  7. FOSTER [Concomitant]
     Active Substance: BECLOMETHASONE\FORMOTEROL
     Dosage: 100/6, 1-0-0, 100 UG BECLOMETHASONE DIPROPIONATE AND 6 UG FORMOTEROL FUMARATE DIHYDRATE
  8. CYCLOSPORINE [Concomitant]
     Active Substance: CYCLOSPORINE
     Dosage: 1-0-1
  9. RIVOTRIL [Concomitant]
     Active Substance: CLONAZEPAM
     Dosage: EVENING
  10. RIVOTRIL [Concomitant]
     Active Substance: CLONAZEPAM
     Dosage: 4 DROPS AT NIGHT
  11. GABAPENTIN [Concomitant]
     Active Substance: GABAPENTIN
  12. OXYBUTYNIN [Concomitant]
     Active Substance: OXYBUTYNIN

REACTIONS (18)
  - Coronavirus infection [Recovered/Resolved]
  - Uveitis [Recovered/Resolved]
  - Fall [Unknown]
  - Skeletal injury [Recovered/Resolved]
  - Ligament sprain [Recovered/Resolved]
  - Fatigue [Recovered/Resolved]
  - Osteitis [Recovered/Resolved]
  - Asthenia [Recovered/Resolved]
  - Pulpitis dental [Recovered/Resolved]
  - Muscular weakness [Not Recovered/Not Resolved]
  - Balance disorder [Not Recovered/Not Resolved]
  - Headache [Not Recovered/Not Resolved]
  - Trigeminal neuralgia [Recovered/Resolved]
  - Urinary tract infection [Recovered/Resolved]
  - White blood cells urine [Unknown]
  - Bladder disorder [Recovered/Resolved]
  - Urinary incontinence [Not Recovered/Not Resolved]
  - Off label use [Unknown]

NARRATIVE: CASE EVENT DATE: 20190101
